FAERS Safety Report 4273691-6 (Version None)
Quarter: 2004Q1

REPORT INFORMATION
  Report Type: 
  Country: None (occurrence: None)
  Receive Date: 20040119
  Receipt Date: 20031126
  Transmission Date: 20041129
  Serious: Yes (Hospitalization)
  Sender: FDA-Public Use
  Company Number: BR-ROCHE-352866

PATIENT
  Sex: Male

DRUGS (1)
  1. ACCUTANE [Suspect]
     Indication: ACNE
     Route: 048

REACTIONS (4)
  - HEPATIC ENZYME INCREASED [None]
  - INFECTIOUS MONONUCLEOSIS [None]
  - PROSTRATION [None]
  - PYREXIA [None]
